FAERS Safety Report 9095504 (Version 2)
Quarter: 2013Q1

REPORT INFORMATION
  Report Type: Spontaneous
  Country: JP (occurrence: None)
  Receive Date: 20130124
  Receipt Date: 20130313
  Transmission Date: 20140127
  Serious: No
  Sender: FDA-Public Use
  Company Number: TCI2013A00194

PATIENT
  Sex: 0

DRUGS (4)
  1. VOGLIBOSE [Suspect]
     Route: 048
     Dates: start: 201211
  2. ACTOS (PIOGLITAZONE HYDROCHLORIDE) [Suspect]
     Indication: DIABETES MELLITUS
     Route: 048
     Dates: start: 201211, end: 20130111
  3. MICAMLO AP (AMLODIPINE BESILATE, TELMISARTAN) [Concomitant]
  4. AMLODIN (AMLODIPINE BESILATE) [Concomitant]

REACTIONS (1)
  - Rhabdomyolysis [None]
